FAERS Safety Report 4316609-X (Version None)
Quarter: 2004Q1

REPORT INFORMATION
  Report Type: 
  Country: None (occurrence: None)
  Receive Date: 20040312
  Receipt Date: 20040303
  Transmission Date: 20041129
  Serious: Yes (Death)
  Sender: FDA-Public Use
  Company Number: 2004SE01234

PATIENT

DRUGS (1)
  1. MARCAINE [Suspect]
     Indication: LABOUR PAIN
     Dosage: 4 INJECTIONS
     Dates: start: 20030901

REACTIONS (8)
  - BRADYCARDIA FOETAL [None]
  - CAESAREAN SECTION [None]
  - COMPLICATIONS OF MATERNAL EXPOSURE TO THERAPEUTIC DRUGS [None]
  - DRUG EXPOSURE DURING PREGNANCY [None]
  - FOETAL DISTRESS SYNDROME [None]
  - INTERNAL INJURY [None]
  - INTRA-UTERINE DEATH [None]
  - MEDICATION ERROR [None]
